FAERS Safety Report 14824236 (Version 1)
Quarter: 2018Q2

REPORT INFORMATION
  Report Type: Spontaneous
  Country: US (occurrence: US)
  Receive Date: 20180428
  Receipt Date: 20180428
  Transmission Date: 20180711
  Serious: No
  Sender: FDA-Public Use
  Company Number: US-JNJFOC-20180403509

PATIENT
  Sex: Female

DRUGS (3)
  1. PHENTERMINE. [Concomitant]
     Active Substance: PHENTERMINE
     Indication: DIABETES MELLITUS
     Route: 065
  2. VISINE [Suspect]
     Active Substance: TETRAHYDROZOLINE HYDROCHLORIDE
     Indication: VISION BLURRED
     Route: 065
     Dates: start: 2014
  3. VISINE [Suspect]
     Active Substance: TETRAHYDROZOLINE HYDROCHLORIDE
     Route: 065

REACTIONS (1)
  - Product use in unapproved indication [Unknown]

NARRATIVE: CASE EVENT DATE: 2014
